FAERS Safety Report 8405077-4 (Version None)
Quarter: 2012Q2

REPORT INFORMATION
  Report Type: 
  Country: None (occurrence: None)
  Receive Date: 20120601
  Receipt Date: 20120517
  Transmission Date: 20120825
  Serious: Yes (Other)
  Sender: FDA-Public Use
  Company Number: CHPA2012US011254

PATIENT
  Age: 65 Year
  Sex: Female

DRUGS (4)
  1. DRUG THERAPY NOS [Concomitant]
     Dosage: UNK, UNK
  2. FUROSEMIDE [Concomitant]
     Dosage: UNK, UNK
  3. BENEFIBER W/ WHEAT DEXTRIN [Suspect]
     Indication: CONSTIPATION
     Dosage: 2 TSP, 8 TIMES A DAY
     Route: 048
     Dates: start: 20110101
  4. POTASSIUM CHLORIDE [Concomitant]
     Dosage: UNK, UNK

REACTIONS (6)
  - VOMITING [None]
  - LUNG NEOPLASM MALIGNANT [None]
  - OFF LABEL USE [None]
  - NAUSEA [None]
  - OVERDOSE [None]
  - CARPAL TUNNEL SYNDROME [None]
